FAERS Safety Report 8294281-4 (Version None)
Quarter: 2012Q2

REPORT INFORMATION
  Report Type: 
  Country: None (occurrence: None)
  Receive Date: 20120418
  Receipt Date: 20120409
  Transmission Date: 20120825
  Serious: Yes (Hospitalization, Disabling)
  Sender: FDA-Public Use
  Company Number: CA-B.I. PHARMACEUTICALS,INC./RIDGEFIELD-2012-CN-00647CN

PATIENT
  Sex: Female
  Weight: 79 kg

DRUGS (10)
  1. FUROSEMIDE [Concomitant]
     Indication: DIURETIC THERAPY
     Dosage: 20 MG
  2. SERC [Concomitant]
     Indication: VERTIGO
     Dosage: 48 MG
  3. TRIAL PROCEDURE [Suspect]
  4. ATORVASTATIN [Concomitant]
     Indication: HYPERLIPIDAEMIA
     Dosage: 20 MG
  5. PREMARIN [Concomitant]
     Indication: MENOPAUSE
     Dosage: 0.3 MG
  6. BISOPROLOL FUMARATE [Concomitant]
     Indication: ATRIAL FIBRILLATION
     Dosage: 5 MG
  7. RABEPRAZOLE SODIUM [Concomitant]
     Dosage: 40 MG
  8. SERC [Concomitant]
     Indication: MENIERE'S DISEASE
  9. INDAPAMIDE [Concomitant]
     Indication: HYPERTENSION
     Dosage: 1.25 NR
  10. PRADAXA [Suspect]
     Indication: ATRIAL FIBRILLATION
     Dosage: 300 MG
     Route: 048
     Dates: start: 20111001

REACTIONS (1)
  - CEREBROVASCULAR ACCIDENT [None]
